FAERS Safety Report 9930209 (Version 1)
Quarter: 2014Q1

REPORT INFORMATION
  Report Type: Spontaneous
  Country: US (occurrence: US)
  Receive Date: 20140227
  Receipt Date: 20140227
  Transmission Date: 20141002
  Serious: No
  Sender: FDA-Public Use
  Company Number: US-AMGEN-USASP2013077203

PATIENT
  Age: 52 Year
  Sex: Female
  Weight: 81.63 kg

DRUGS (12)
  1. ENBREL [Suspect]
     Indication: PRODUCT USED FOR UNKNOWN INDICATION
     Dosage: 50 MG, QWK
     Route: 058
  2. NORCO [Concomitant]
     Dosage: UNK, 7.5-325
  3. PREDNISONE [Concomitant]
     Dosage: 1 MG, UNK
  4. CYMBALTA [Concomitant]
     Dosage: 60 MG, UNK
  5. FOSAMAX [Concomitant]
     Dosage: 10 MG, UNK
  6. DEXILANT [Concomitant]
     Dosage: 30 MG, UNK
  7. VITAMIN D                          /00107901/ [Concomitant]
     Dosage: 50000 UNIT, UNK
  8. FOLIC ACID [Concomitant]
     Dosage: UNK
  9. VITAMIN B 12 [Concomitant]
     Dosage: 50 MUG, UNK
  10. CLARITIN                           /00413701/ [Concomitant]
     Dosage: 10 MG, UNK
  11. LISINOPRIL [Concomitant]
     Dosage: 2.5 MG, UNK
  12. SULINDAC [Concomitant]
     Dosage: 150 MG, UNK

REACTIONS (3)
  - Periorbital oedema [Unknown]
  - Urine output decreased [Unknown]
  - Malaise [Unknown]
